FAERS Safety Report 9929009 (Version 1)
Quarter: 2014Q1

REPORT INFORMATION
  Report Type: Spontaneous
  Country: US (occurrence: US)
  Receive Date: 20140227
  Receipt Date: 20140227
  Transmission Date: 20141002
  Serious: Yes (Hospitalization, Other)
  Sender: FDA-Public Use
  Company Number: US-TEVA-465350USA

PATIENT
  Age: 67 Year
  Sex: Male

DRUGS (3)
  1. DESMOPRESSIN [Suspect]
     Indication: SUBGALEAL HAEMATOMA
     Route: 042
  2. ACETYLSALICYLIC ACID [Concomitant]
     Indication: ANTIPLATELET THERAPY
     Route: 065
  3. CLOPIDOGREL [Concomitant]
     Indication: ANTIPLATELET THERAPY
     Route: 065

REACTIONS (3)
  - Thrombosis in device [Recovering/Resolving]
  - Acute myocardial infarction [Recovering/Resolving]
  - Shock [Recovering/Resolving]
